FAERS Safety Report 10626338 (Version 1)
Quarter: 2014Q4

REPORT INFORMATION
  Report Type: Spontaneous
  Country: DE (occurrence: AT)
  Receive Date: 20141204
  Receipt Date: 20141204
  Transmission Date: 20150529
  Serious: Yes (Hospitalization)
  Sender: FDA-Public Use
  Company Number: AT-MERZ NORTH AMERICA, INC.-14MRZ-00429

PATIENT
  Age: 64 Year
  Sex: Female

DRUGS (5)
  1. OROXINE [Concomitant]
     Active Substance: LEVOTHYROXINE SODIUM
  2. AETHOXYSKLEROL [Suspect]
     Active Substance: POLIDOCANOL
     Indication: VARICOSE VEIN
     Dosage: DILUTION (UNKNOWN DILUENT): 4 ML AETHOXYSKLEROL 1.25% + AETHOXYSKLEROL 0.6%
     Route: 042
     Dates: start: 20141114
  3. ZOPICLONE [Concomitant]
     Active Substance: ZOPICLONE
     Dosage: DILUTION (UNKNOWN DILUTENT): 4ML AETHOXYSKLEROL 1.25% + 3ML  AETHOXYSKLEROL 0.6%
  4. CRESTOR [Concomitant]
     Active Substance: ROSUVASTATIN CALCIUM
  5. SANDRENA [Concomitant]
     Active Substance: ESTRADIOL

REACTIONS (4)
  - Dizziness [None]
  - Malaise [None]
  - Asthenia [None]
  - Chest discomfort [None]

NARRATIVE: CASE EVENT DATE: 20141114
